FAERS Safety Report 17581955 (Version 1)
Quarter: 2020Q1

REPORT INFORMATION
  Report Type: Spontaneous
  Country: US (occurrence: US)
  Receive Date: 20200323
  Receipt Date: 20200323
  Transmission Date: 20200409
  Serious: No
  Sender: FDA-Public Use
  Company Number: None

PATIENT
  Age: 81 Year
  Sex: Female
  Weight: 62.6 kg

DRUGS (6)
  1. CLOPIEGRAL [Concomitant]
  2. CLOBETASOL PROPIONATE OINTMENT USP, 0.05% FOR EXTERNAL USE ONLY [Suspect]
     Active Substance: CLOBETASOL PROPIONATE
     Indication: LICHEN SCLEROSUS
     Dosage: ?          QUANTITY:60 G GRAM(S);OTHER FREQUENCY:APPLY SPARINGLY TO;?
     Route: 061
     Dates: start: 20200307, end: 20200314
  3. AMLODIPINE BESOLATE [Concomitant]
  4. LEVOTHYROXINE. [Concomitant]
     Active Substance: LEVOTHYROXINE
  5. LOSARTAN. [Concomitant]
     Active Substance: LOSARTAN
  6. LIVALO [Concomitant]
     Active Substance: PITAVASTATIN CALCIUM

REACTIONS (3)
  - Rectal haemorrhage [None]
  - Breast enlargement [None]
  - Application site pain [None]

NARRATIVE: CASE EVENT DATE: 20200308
